FAERS Safety Report 12306639 (Version 1)
Quarter: 2016Q2

REPORT INFORMATION
  Report Type: Spontaneous
  Country: None (occurrence: US)
  Receive Date: 20160426
  Receipt Date: 20160426
  Transmission Date: 20160815
  Serious: Yes (Hospitalization)
  Sender: FDA-Public Use
  Company Number: US-ALKERMES INC.-ALK-2016-000565

PATIENT

DRUGS (2)
  1. METHADONE [Concomitant]
     Active Substance: METHADONE HYDROCHLORIDE
     Indication: PRODUCT USED FOR UNKNOWN INDICATION
     Dosage: UNK
     Dates: end: 20160220
  2. VIVITROL [Suspect]
     Active Substance: NALTREXONE
     Dosage: 380 MG, QMO
     Route: 030
     Dates: start: 20160226

REACTIONS (8)
  - Malaise [Recovered/Resolved]
  - Diarrhoea [Unknown]
  - Drug withdrawal syndrome [Unknown]
  - Drug administration error [Recovered/Resolved]
  - Feeling cold [Unknown]
  - Decreased appetite [Recovered/Resolved]
  - Body temperature decreased [Unknown]
  - Feeling hot [Unknown]

NARRATIVE: CASE EVENT DATE: 20160226
